FAERS Safety Report 7757699-1 (Version None)
Quarter: 2011Q3

REPORT INFORMATION
  Report Type: 
  Country: None (occurrence: None)
  Receive Date: 20110916
  Receipt Date: 20110908
  Transmission Date: 20111222
  Serious: Yes (Hospitalization, Disabling, Congenital Anomaly)
  Sender: FDA-Public Use
  Company Number: US-MERCK-0805USA00721

PATIENT
  Age: 60 Year
  Sex: Female

DRUGS (6)
  1. FOSAMAX [Suspect]
     Indication: OSTEOPENIA
     Route: 048
     Dates: start: 20010801, end: 20060101
  2. AMITRIPTYLINE HCL [Concomitant]
     Indication: PSORIATIC ARTHROPATHY
     Route: 065
     Dates: start: 19981201, end: 20060101
  3. METHOTREXATE [Concomitant]
     Indication: PSORIATIC ARTHROPATHY
     Route: 065
     Dates: start: 19990901, end: 20060101
  4. ALTACE [Concomitant]
     Indication: HYPERTENSION
     Route: 065
     Dates: start: 19981001
  5. FOSAMAX [Suspect]
     Indication: OSTEOPOROSIS
     Route: 048
     Dates: start: 20010801, end: 20060101
  6. PLAQUENIL [Concomitant]
     Route: 048

REACTIONS (43)
  - SPINAL DISORDER [None]
  - PERIODONTITIS [None]
  - DRUG HYPERSENSITIVITY [None]
  - DEPRESSION [None]
  - DIARRHOEA [None]
  - SPONDYLOLISTHESIS [None]
  - DENTAL CARIES [None]
  - TEMPOROMANDIBULAR JOINT SYNDROME [None]
  - SLEEP DISORDER [None]
  - OSTEONECROSIS OF JAW [None]
  - ADVERSE EVENT [None]
  - OSTEOARTHRITIS [None]
  - TOOTH LOSS [None]
  - RASH [None]
  - SKIN DISORDER [None]
  - SPINAL OSTEOARTHRITIS [None]
  - NECROSIS [None]
  - ABSCESS [None]
  - PSORIASIS [None]
  - FACET JOINT SYNDROME [None]
  - JAW DISORDER [None]
  - EDENTULOUS [None]
  - FIBROMYALGIA [None]
  - OSTEOPENIA [None]
  - ORAL INFECTION [None]
  - OSTEOMA [None]
  - SPINAL COLUMN STENOSIS [None]
  - VERTIGO POSITIONAL [None]
  - NECK PAIN [None]
  - DRUG INTOLERANCE [None]
  - TENDONITIS [None]
  - LIVER DISORDER [None]
  - NAUSEA [None]
  - BURSITIS [None]
  - INTERVERTEBRAL DISC DEGENERATION [None]
  - FALL [None]
  - HEADACHE [None]
  - SACROILIITIS [None]
  - RADICULOPATHY [None]
  - SYNOVIAL CYST [None]
  - ARTHRALGIA [None]
  - FATIGUE [None]
  - PAIN IN EXTREMITY [None]
